FAERS Safety Report 8352523-0 (Version None)
Quarter: 2012Q2

REPORT INFORMATION
  Report Type: 
  Country: None (occurrence: None)
  Receive Date: 20120511
  Receipt Date: 20120509
  Transmission Date: 20120825
  Serious: Yes (Hospitalization)
  Sender: FDA-Public Use
  Company Number: PHHO2006US11569

PATIENT
  Sex: Female
  Weight: 83.1 kg

DRUGS (6)
  1. LEVAQUIN [Concomitant]
  2. IMATINIB MESYLATE [Suspect]
     Indication: METASTATIC RENAL CELL CARCINOMA
     Dosage: 600 MG, QD
     Route: 048
     Dates: start: 20060505, end: 20060623
  3. DIOVAN [Concomitant]
  4. RAD001C [Suspect]
     Dosage: 2.5 MG, QD
     Route: 048
     Dates: start: 20060505, end: 20060623
  5. CALCIUM [Concomitant]
  6. VITAMIN TAB [Concomitant]

REACTIONS (21)
  - COUGH [None]
  - DYSPNOEA [None]
  - PYREXIA [None]
  - HYPERTENSION [None]
  - PLEURAL EFFUSION [None]
  - PERICARDIAL EFFUSION [None]
  - HEADACHE [None]
  - PAIN [None]
  - THROMBOCYTOSIS [None]
  - RESPIRATORY DISTRESS [None]
  - PULMONARY TOXICITY [None]
  - NORMOCHROMIC NORMOCYTIC ANAEMIA [None]
  - HYPOXIA [None]
  - LUNG INFILTRATION [None]
  - VOMITING [None]
  - NAUSEA [None]
  - PNEUMONITIS [None]
  - RHINORRHOEA [None]
  - OXYGEN SATURATION DECREASED [None]
  - PULMONARY OEDEMA [None]
  - ABDOMINAL PAIN UPPER [None]
